FAERS Safety Report 8894902 (Version 2)
Quarter: 2013Q1

REPORT INFORMATION
  Report Type: Spontaneous
  Country: BR (occurrence: BR)
  Receive Date: 20121108
  Receipt Date: 20130319
  Transmission Date: 20140127
  Serious: Yes (Other)
  Sender: FDA-Public Use
  Company Number: PHHY2012BR102030

PATIENT
  Sex: Male

DRUGS (2)
  1. ONBREZ [Suspect]
     Indication: EMPHYSEMA
     Dosage: 2 DF, BID
  2. SPIRIVA [Suspect]

REACTIONS (2)
  - Drug dependence [Unknown]
  - Inappropriate schedule of drug administration [Unknown]
